FAERS Safety Report 20974044 (Version 1)
Quarter: 2022Q2

REPORT INFORMATION
  Report Type: Report from Study
  Country: MX (occurrence: MX)
  Receive Date: 20220617
  Receipt Date: 20220617
  Transmission Date: 20220721
  Serious: Yes (Other)
  Sender: FDA-Public Use
  Company Number: MX-NOVARTISPH-PHHY2015MX111877

PATIENT
  Sex: Female
  Weight: 79 kg

DRUGS (5)
  1. EXFORGE [Suspect]
     Active Substance: AMLODIPINE BESYLATE\VALSARTAN
     Indication: Hypertension
     Dosage: 1 DOSAGE FORM, QD
     Route: 065
  2. EXFORGE [Suspect]
     Active Substance: AMLODIPINE BESYLATE\VALSARTAN
     Dosage: 1 DOSAGE FORM, (5/160 MG), AT NIGHT, STARTED 10 YEARS AGO (UNK EXACT DATE)
     Route: 048
  3. SULINDAC [Concomitant]
     Active Substance: SULINDAC
     Indication: Product used for unknown indication
     Dosage: UNK, Q12H, ONLY IN CASE OF PAIN
     Route: 065
  4. LEVOTHYROXINE SODIUM [Concomitant]
     Active Substance: LEVOTHYROXINE SODIUM
     Indication: Hypothyroidism
     Dosage: 1 DOSAGE FORM (125 MG), QD
     Route: 065
  5. LEVOTHYROXINE SODIUM [Concomitant]
     Active Substance: LEVOTHYROXINE SODIUM
     Dosage: 125 UG, QD, IN THE MORNING, STARTED 15 YEARS AGO (UNK EXACT DATE)
     Route: 048

REACTIONS (2)
  - Diabetes mellitus [Unknown]
  - Blood triglycerides increased [Unknown]
